FAERS Safety Report 7204777-1 (Version None)
Quarter: 2010Q4

REPORT INFORMATION
  Report Type: 
  Country: None (occurrence: None)
  Receive Date: 20101230
  Receipt Date: 20101216
  Transmission Date: 20110411
  Serious: Yes (Hospitalization)
  Sender: FDA-Public Use
  Company Number: ES-CELGENEUS-144-21880-10110348

PATIENT
  Sex: Female
  Weight: 71 kg

DRUGS (7)
  1. REVLIMID [Suspect]
     Indication: MULTIPLE MYELOMA
     Route: 048
     Dates: start: 20100614
  2. REVLIMID [Suspect]
     Route: 048
     Dates: start: 20101011, end: 20101115
  3. DEXAMETHASONE [Suspect]
     Indication: MULTIPLE MYELOMA
     Route: 048
     Dates: start: 20100614
  4. DEXAMETHASONE [Suspect]
     Route: 048
     Dates: start: 20101108, end: 20101110
  5. ASPIRIN [Concomitant]
     Indication: THROMBOSIS PROPHYLAXIS
     Route: 048
  6. PLATELETS [Concomitant]
     Dosage: 2U
     Route: 051
     Dates: start: 20101028, end: 20101028
  7. RED BLOOD CELLS [Concomitant]
     Dosage: 4U
     Route: 051
     Dates: start: 20101028, end: 20101028

REACTIONS (3)
  - DEMENTIA [None]
  - FEBRILE NEUTROPENIA [None]
  - TOXIC ENCEPHALOPATHY [None]
